FAERS Safety Report 8766478 (Version 1)
Quarter: 2012Q4

REPORT INFORMATION
  Report Type: 
  Country: JP (occurrence: JP)
  Receive Date: 20120904
  Receipt Date: 20120904
  Transmission Date: 20130627
  Serious: Yes (Life-Threatening)
  Sender: FDA-Public Use
  Company Number: JP-ASTRAZENECA-2012SE54684

PATIENT
  Age: 727 Month
  Sex: Female

DRUGS (9)
  1. PULMICORT TURBUHALER [Suspect]
     Indication: ASTHMA
     Route: 055
     Dates: start: 20120614, end: 20120616
  2. FLUTIDE [Concomitant]
     Indication: ASTHMA
     Route: 055
  3. FLUTIDE [Concomitant]
     Indication: ASTHMA
     Dosage: Patient history.
     Route: 055
  4. SELBEX [Concomitant]
     Indication: GASTRIC ULCER
     Route: 048
  5. SKYRON [Concomitant]
     Indication: RHINITIS ALLERGIC
     Route: 045
  6. SIGMART [Concomitant]
     Indication: ANGINA PECTORIS
     Dosage: Dose unknown.
     Route: 065
  7. AMLODIPINE [Concomitant]
     Indication: ANGINA PECTORIS
     Dosage: Dose unknown.
     Route: 065
  8. HERBESSER [Concomitant]
     Indication: ANGINA PECTORIS
     Dosage: Dose unknown.
     Route: 065
  9. NITROPEN [Concomitant]
     Indication: ANGINA PECTORIS
     Dosage: Dose unknown.
     Route: 065

REACTIONS (1)
  - Haemoptysis [Recovered/Resolved]
